FAERS Safety Report 11903335 (Version 2)
Quarter: 2016Q1

REPORT INFORMATION
  Report Type: Spontaneous
  Country: US (occurrence: US)
  Receive Date: 20160108
  Receipt Date: 20160111
  Transmission Date: 20160526
  Serious: No
  Sender: FDA-Public Use
  Company Number: US-GLAXOSMITHKLINE-US2016001724

PATIENT
  Age: 40 Year
  Sex: Female

DRUGS (1)
  1. NICORETTE [Suspect]
     Active Substance: NICOTINE
     Indication: PRODUCT USED FOR UNKNOWN INDICATION
     Dosage: 4 MG, UNK
     Dates: start: 201512

REACTIONS (5)
  - Oral pain [Recovered/Resolved]
  - Glossodynia [Recovered/Resolved]
  - Mouth swelling [Recovered/Resolved]
  - Dysgeusia [Recovered/Resolved]
  - Oral discomfort [Recovered/Resolved]
